FAERS Safety Report 9352050 (Version 1)
Quarter: 2013Q2

REPORT INFORMATION
  Report Type: Spontaneous
  Country: IT (occurrence: IT)
  Receive Date: 20130617
  Receipt Date: 20130617
  Transmission Date: 20140414
  Serious: Yes (Hospitalization)
  Sender: FDA-Public Use
  Company Number: IT-BAYER-2013-071277

PATIENT
  Age: 47 Year
  Sex: Female

DRUGS (3)
  1. CARDIOASPIRIN [Suspect]
     Indication: THROMBOSIS PROPHYLAXIS
     Dosage: 2000 G, ONCE
     Route: 048
     Dates: start: 20130405, end: 20130405
  2. ZOLPIDEM [Suspect]
     Indication: INSOMNIA
     Dosage: 600 MG, ONCE
     Route: 048
     Dates: start: 20130405, end: 20130405
  3. LEVOTHYROXINE SODIUM [Concomitant]
     Dosage: DAILY DOSE 1 DF
     Route: 048

REACTIONS (2)
  - Sopor [Recovered/Resolved]
  - Vomiting [Recovered/Resolved]
